FAERS Safety Report 5061088-0 (Version None)
Quarter: 2006Q3

REPORT INFORMATION
  Report Type: 
  Country: None (occurrence: None)
  Receive Date: 20060725
  Receipt Date: 20060714
  Transmission Date: 20061208
  Serious: Yes (Other)
  Sender: FDA-Public Use
  Company Number: US-ROCHE-456045

PATIENT

DRUGS (2)
  1. ACCUTANE [Suspect]
     Dates: start: 19920930, end: 19930111
  2. ACCUTANE [Suspect]
     Dates: start: 19950710, end: 19951016

REACTIONS (3)
  - DRUG EXPOSURE DURING PREGNANCY [None]
  - NO ADVERSE EFFECT [None]
  - NORMAL NEWBORN [None]
